FAERS Safety Report 19040191 (Version 1)
Quarter: 2021Q1

REPORT INFORMATION
  Report Type: Spontaneous
  Country: US (occurrence: US)
  Receive Date: 20210322
  Receipt Date: 20210322
  Transmission Date: 20210420
  Serious: Yes (Other)
  Sender: FDA-Public Use
  Company Number: US-BIOHAVEN PHARMACEUTICALS-2020BHV00986

PATIENT
  Age: 62 Year
  Sex: Female
  Weight: 59.86 kg

DRUGS (7)
  1. VITAMIN D [Concomitant]
     Active Substance: VITAMIN D NOS
  2. MULTIVITAMIN [Concomitant]
     Active Substance: VITAMINS
  3. BOTOX [Concomitant]
     Active Substance: ONABOTULINUMTOXINA
  4. ZEMBRACE SYMTOUCH [Concomitant]
     Active Substance: SUMATRIPTAN SUCCINATE
  5. NURTEC ODT [Suspect]
     Active Substance: RIMEGEPANT SULFATE
     Indication: HEADACHE
     Dosage: 75 MG, AS NEEDED
     Route: 048
     Dates: start: 202012, end: 20201227
  6. IMITREX [Concomitant]
     Active Substance: SUMATRIPTAN SUCCINATE
  7. TOPAMAX [Concomitant]
     Active Substance: TOPIRAMATE
     Dosage: AT NIGHT

REACTIONS (4)
  - Ear pruritus [Recovered/Resolved]
  - Throat irritation [Recovered/Resolved]
  - Nasal pruritus [Recovered/Resolved]
  - Hypersensitivity [Recovered/Resolved]

NARRATIVE: CASE EVENT DATE: 20201227
